FAERS Safety Report 4847895-5 (Version None)
Quarter: 2005Q4

REPORT INFORMATION
  Report Type: 
  Country: None (occurrence: None)
  Receive Date: 20051206
  Receipt Date: 20051123
  Transmission Date: 20060501
  Serious: Yes (Other)
  Sender: FDA-Public Use
  Company Number: 2005160760

PATIENT
  Age: 42 Year
  Sex: Female
  Weight: 85.2762 kg

DRUGS (2)
  1. ZMAX [Suspect]
     Indication: LYMPHADENOPATHY
     Dosage: 2 GRAM (2 GRAM, 1 IN 1 D), ORAL
     Route: 048
     Dates: start: 20051110, end: 20051110
  2. PERCOCET [Concomitant]

REACTIONS (13)
  - ABDOMINAL PAIN UPPER [None]
  - ASPIRATION [None]
  - CHOKING [None]
  - CONTUSION [None]
  - CONVULSION [None]
  - COUGH [None]
  - DYSPNOEA [None]
  - GLOSSODYNIA [None]
  - HYPERSENSITIVITY [None]
  - LYMPHADENOPATHY [None]
  - MUSCLE CONTRACTIONS INVOLUNTARY [None]
  - MUSCLE SPASMS [None]
  - SWOLLEN TONGUE [None]
